FAERS Safety Report 7280950-1 (Version None)
Quarter: 2011Q1

REPORT INFORMATION
  Report Type: 
  Country: None (occurrence: None)
  Receive Date: 20110208
  Receipt Date: 20110203
  Transmission Date: 20110831
  Serious: Yes (Death, Other)
  Sender: FDA-Public Use
  Company Number: CN-BRACCO-000189

PATIENT
  Sex: Male
  Weight: 55 kg

DRUGS (4)
  1. ULTRAVIST 370 [Suspect]
     Indication: PERCUTANEOUS CORONARY INTERVENTION
     Route: 013
     Dates: start: 20101015, end: 20101015
  2. IOPAMIDOL [Concomitant]
     Indication: PERCUTANEOUS CORONARY INTERVENTION
     Route: 042
     Dates: start: 20101014, end: 20101014
  3. ULTRAVIST 370 [Suspect]
     Indication: CORONARY ARTERY OCCLUSION
     Route: 013
     Dates: start: 20101015, end: 20101015
  4. IOPAMIDOL [Concomitant]
     Indication: CORONARY ARTERY OCCLUSION
     Route: 042
     Dates: start: 20101014, end: 20101014

REACTIONS (1)
  - ANAPHYLACTOID SHOCK [None]
